FAERS Safety Report 8066205-6 (Version None)
Quarter: 2012Q1

REPORT INFORMATION
  Report Type: 
  Country: None (occurrence: None)
  Receive Date: 20120117
  Receipt Date: 20120102
  Transmission Date: 20120608
  Serious: Yes (Death)
  Sender: FDA-Public Use
  Company Number: 2011DZ0329

PATIENT
  Age: 7 Month
  Sex: Female

DRUGS (1)
  1. ORFADIN [Suspect]
     Indication: TYROSINAEMIA
     Dosage: 0, 5 MG (0, 5 MG, 1 IN 1 D), PER ORAL
     Route: 048
     Dates: start: 20111017, end: 20111017

REACTIONS (5)
  - HEPATIC ENCEPHALOPATHY [None]
  - HEPATIC FAILURE [None]
  - COMA [None]
  - HEPATIC CIRRHOSIS [None]
  - PORTAL HYPERTENSION [None]
